FAERS Safety Report 9197857 (Version 1)
Quarter: 2013Q1

REPORT INFORMATION
  Report Type: Spontaneous
  Country: US (occurrence: US)
  Receive Date: 20130328
  Receipt Date: 20130328
  Transmission Date: 20140127
  Serious: Yes (Disabling)
  Sender: FDA-Public Use
  Company Number: US-PFIZER INC-2013099915

PATIENT
  Age: 61 Year
  Sex: Female
  Weight: 70.3 kg

DRUGS (1)
  1. LIPITOR [Suspect]
     Indication: BLOOD CHOLESTEROL INCREASED
     Dosage: 20 MG, 1X/DAY
     Route: 048
     Dates: end: 2010

REACTIONS (2)
  - Sleep apnoea syndrome [Unknown]
  - Multiple sclerosis [Unknown]
